FAERS Safety Report 5030048-8 (Version None)
Quarter: 2006Q2

REPORT INFORMATION
  Report Type: 
  Country: None (occurrence: None)
  Receive Date: 20060614
  Receipt Date: 20060605
  Transmission Date: 20061013
  Serious: Yes (Other)
  Sender: FDA-Public Use
  Company Number: 2006072268

PATIENT
  Age: 50 Year
  Sex: Male

DRUGS (6)
  1. VIRACEPT [Suspect]
     Indication: HIV TEST POSITIVE
     Dosage: 2500 MG (1250 MG, 2 IN 1 D)
  2. CARBAMAZEPINE [Suspect]
     Indication: COMPLEX PARTIAL SEIZURES
     Dosage: 1200 MG (400 MG, 3 IN 1 D)
  3. TENOFOVIR (TENOFOVIR) [Suspect]
     Indication: HIV TEST POSITIVE
     Dosage: 300 MG
  4. LAMIVUDINE [Suspect]
     Indication: HIV TEST POSITIVE
     Dosage: 300 MG (150 MG, 2 IN 1 D)
  5. CITALOPRAM HYDROBROMIDE [Concomitant]
  6. FLUCONAZOLE [Concomitant]

REACTIONS (11)
  - ANAEMIA [None]
  - BALANCE DISORDER [None]
  - BONE MARROW TOXICITY [None]
  - CONFUSIONAL STATE [None]
  - DISTURBANCE IN ATTENTION [None]
  - DYSPHAGIA [None]
  - FATIGUE [None]
  - HAEMORRHAGE [None]
  - ORAL CANDIDIASIS [None]
  - SOMNOLENCE [None]
  - STEVENS-JOHNSON SYNDROME [None]
